FAERS Safety Report 4417771-0 (Version None)
Quarter: 2004Q2

REPORT INFORMATION
  Report Type: 
  Country: None (occurrence: None)
  Receive Date: 20040621
  Receipt Date: 20040427
  Transmission Date: 20050107
  Serious: No
  Sender: FDA-Public Use
  Company Number: PHEH2004US03701

PATIENT
  Age: 83 Year
  Sex: Male

DRUGS (6)
  1. ZOMETA [Suspect]
     Indication: METASTASES TO BONE
     Dosage: 4M ONE TIME ONLY DOSE, INTRAVENOUS
     Route: 042
     Dates: start: 20040211, end: 20040211
  2. NORVASC [Concomitant]
  3. LIPITOR [Concomitant]
  4. CARDIOTEC (TECHNETIUM TC 99M TEBOROXIME) [Concomitant]
  5. LOPRESSOR [Concomitant]
  6. FLOMAX [Concomitant]

REACTIONS (3)
  - HYPERSENSITIVITY [None]
  - RASH [None]
  - URTICARIA [None]
